FAERS Safety Report 7771240-9 (Version None)
Quarter: 2011Q3

REPORT INFORMATION
  Report Type: 
  Country: None (occurrence: None)
  Receive Date: 20110922
  Receipt Date: 20110510
  Transmission Date: 20111222
  Serious: Yes (Other)
  Sender: FDA-Public Use
  Company Number: US-ASTRAZENECA-2011SE27778

PATIENT
  Age: 42 Year
  Sex: Male
  Weight: 127 kg

DRUGS (4)
  1. SEROQUEL XR [Suspect]
     Indication: DEPRESSION
     Route: 048
     Dates: start: 20101201
  2. CLONAZEPAM [Concomitant]
  3. LAMICTAL [Concomitant]
     Indication: CONVULSION
  4. SEROQUEL XR [Suspect]
     Indication: ANXIETY
     Route: 048
     Dates: start: 20101201

REACTIONS (1)
  - GRAND MAL CONVULSION [None]
